FAERS Safety Report 8368951-3 (Version None)
Quarter: 2012Q2

REPORT INFORMATION
  Report Type: 
  Country: None (occurrence: None)
  Receive Date: 20120516
  Receipt Date: 20120507
  Transmission Date: 20120825
  Serious: Yes (Other)
  Sender: FDA-Public Use
  Company Number: 2005JP001121

PATIENT
  Age: 32 Year
  Sex: Male

DRUGS (8)
  1. CYTARABINE [Concomitant]
  2. ANTIBIOTICS [Concomitant]
  3. CYCLOPHOSPHAMIDE [Concomitant]
  4. PREDNISOLONE [Concomitant]
  5. PROGRAF [Suspect]
     Indication: PROPHYLAXIS AGAINST GRAFT VERSUS HOST DISEASE
     Dosage: 0.03 MG/KG, IV DRIP
     Route: 041
  6. PROGRAF [Suspect]
     Indication: IMMUNOSUPPRESSION
     Dosage: 0.03 MG/KG, IV DRIP
     Route: 041
  7. PROGRAF [Suspect]
     Indication: BONE MARROW TRANSPLANT
     Dosage: 0.03 MG/KG, IV DRIP
     Route: 041
  8. CYCLOSPORINE [Concomitant]

REACTIONS (14)
  - BLOOD CREATINE PHOSPHOKINASE INCREASED [None]
  - TREMOR [None]
  - HAEMORRHAGE [None]
  - INFECTION [None]
  - INFARCTION [None]
  - POST TRANSPLANT DISTAL LIMB SYNDROME [None]
  - FLUID RETENTION [None]
  - BLOOD ALKALINE PHOSPHATASE INCREASED [None]
  - RASH [None]
  - PRURITUS [None]
  - BLOOD LACTATE DEHYDROGENASE INCREASED [None]
  - BLOOD MAGNESIUM DECREASED [None]
  - DRUG INEFFECTIVE [None]
  - ACUTE GRAFT VERSUS HOST DISEASE [None]
